FAERS Safety Report 18930608 (Version 3)
Quarter: 2021Q1

REPORT INFORMATION
  Report Type: Other
  Country: US (occurrence: US)
  Receive Date: 20210224
  Receipt Date: 20210330
  Transmission Date: 20210420
  Serious: No
  Sender: FDA-Public Use
  Company Number: US-NEUROCRINE BIOSCIENCES INC.-2021NBI00713

PATIENT

DRUGS (2)
  1. INGREZZA [Suspect]
     Active Substance: VALBENAZINE
     Indication: TOURETTE^S DISORDER
     Dosage: 40 MILLIGRAM QD
     Route: 048
     Dates: start: 20200702
  2. PERPHENAZINE. [Concomitant]
     Active Substance: PERPHENAZINE
     Dosage: UNK

REACTIONS (5)
  - Balance disorder [Unknown]
  - Off label use [Unknown]
  - Tremor [Unknown]
  - Fall [Unknown]
  - Parkinsonism [Unknown]
